FAERS Safety Report 14139794 (Version 1)
Quarter: 2017Q4

REPORT INFORMATION
  Report Type: Spontaneous
  Country: US (occurrence: US)
  Receive Date: 20171030
  Receipt Date: 20171030
  Transmission Date: 20180321
  Serious: Yes (Hospitalization)
  Sender: FDA-Public Use
  Company Number: US-ROCHE-2011634

PATIENT
  Age: 82 Year
  Sex: Female

DRUGS (1)
  1. ACTEMRA [Suspect]
     Active Substance: TOCILIZUMAB
     Indication: PRODUCT USED FOR UNKNOWN INDICATION
     Route: 058
     Dates: start: 20170807, end: 201709

REACTIONS (5)
  - Skin exfoliation [Unknown]
  - Oral discomfort [Unknown]
  - Stomatitis [Unknown]
  - Blister [Unknown]
  - Onychomadesis [Unknown]

NARRATIVE: CASE EVENT DATE: 20170928
